FAERS Safety Report 10631388 (Version 1)
Quarter: 2014Q4

REPORT INFORMATION
  Report Type: Spontaneous
  Country: DE (occurrence: None)
  Receive Date: 20141203
  Receipt Date: 20141203
  Transmission Date: 20150529
  Serious: Yes (Hospitalization)
  Sender: FDA-Public Use
  Company Number: DE-20140194

PATIENT
  Age: 15 Year
  Sex: Male
  Weight: 85 kg

DRUGS (1)
  1. DOTAREM [Suspect]
     Active Substance: GADOTERATE MEGLUMINE
     Indication: NUCLEAR MAGNETIC RESONANCE IMAGING SPINAL
     Dosage: 1 IN 1 D, NOT OTHERWISE SPECIFIED)
     Route: 042
     Dates: start: 20141123, end: 20141123

REACTIONS (3)
  - Feeling drunk [None]
  - Cold sweat [None]
  - Dizziness [None]

NARRATIVE: CASE EVENT DATE: 20141123
